FAERS Safety Report 25441614 (Version 2)
Quarter: 2025Q3

REPORT INFORMATION
  Report Type: Spontaneous
  Country: US (occurrence: US)
  Receive Date: 20250616
  Receipt Date: 20250805
  Transmission Date: 20251021
  Serious: Yes (Other)
  Sender: GLAXOSMITHKLINE
  Company Number: US-GLAXOSMITHKLINE INC-US2025AMR073602

PATIENT
  Age: 49 Year
  Sex: Female

DRUGS (2)
  1. BENLYSTA [Suspect]
     Active Substance: BELIMUMAB
     Indication: Systemic lupus erythematosus
     Dosage: 200 MG, WE, (1MLX4)
  2. BENLYSTA [Suspect]
     Active Substance: BELIMUMAB
     Indication: Polyarthritis

REACTIONS (7)
  - Systemic lupus erythematosus [Unknown]
  - Loss of personal independence in daily activities [Unknown]
  - Stress [Recovering/Resolving]
  - Depression [Unknown]
  - Foot fracture [Unknown]
  - Drug ineffective [Not Recovered/Not Resolved]
  - Product use in unapproved indication [Unknown]

NARRATIVE: CASE EVENT DATE: 20220501
